FAERS Safety Report 12654809 (Version 1)
Quarter: 2016Q3

REPORT INFORMATION
  Report Type: Report from Study
  Country: CA (occurrence: CA)
  Receive Date: 20160816
  Receipt Date: 20160816
  Transmission Date: 20161109
  Serious: Yes (Other)
  Sender: FDA-Public Use
  Company Number: CA-AMGEN-CANSL2016103872

PATIENT
  Age: 70 Year
  Sex: Female

DRUGS (6)
  1. VITAMIN D [Concomitant]
     Active Substance: CHOLECALCIFEROL
  2. FOLIC ACID. [Concomitant]
     Active Substance: FOLIC ACID
  3. MELOXICAM. [Concomitant]
     Active Substance: MELOXICAM
  4. CALCIUM [Concomitant]
     Active Substance: CALCIUM
  5. PLAQUENIL [Concomitant]
     Active Substance: HYDROXYCHLOROQUINE SULFATE
  6. PROLIA [Suspect]
     Active Substance: DENOSUMAB
     Indication: PRODUCT USED FOR UNKNOWN INDICATION
     Dosage: UNK
     Route: 065
     Dates: start: 20130528

REACTIONS (5)
  - Finger deformity [Unknown]
  - Excessive granulation tissue [Unknown]
  - Arthritis [Unknown]
  - Drug dose omission [Unknown]
  - Joint arthroplasty [Unknown]

NARRATIVE: CASE EVENT DATE: 201605
